FAERS Safety Report 15516403 (Version 1)
Quarter: 2018Q4

REPORT INFORMATION
  Report Type: Spontaneous
  Country: US (occurrence: US)
  Receive Date: 20181011
  Receipt Date: 20181011
  Transmission Date: 20190205
  Serious: Yes (Death)
  Sender: FDA-Public Use
  Company Number: None

PATIENT
  Age: 82 Year
  Sex: Female

DRUGS (3)
  1. ENTRESTO [Suspect]
     Active Substance: SACUBITRIL\VALSARTAN
     Indication: CARDIAC FAILURE
     Route: 048
  2. DIGOXIN. [Suspect]
     Active Substance: DIGOXIN
     Indication: CARDIAC FAILURE CONGESTIVE
     Dosage: ?          OTHER FREQUENCY:QDAY EXCEPT SUNDAY;?
     Route: 048
  3. DIGOXIN. [Suspect]
     Active Substance: DIGOXIN
     Indication: ATRIAL FIBRILLATION
     Dosage: ?          OTHER FREQUENCY:QDAY EXCEPT SUNDAY;?
     Route: 048

REACTIONS (8)
  - Hyperkalaemia [None]
  - Decreased appetite [None]
  - Toxicity to various agents [None]
  - Lethargy [None]
  - Bradycardia [None]
  - Acute kidney injury [None]
  - Asthenia [None]
  - Depressed level of consciousness [None]

NARRATIVE: CASE EVENT DATE: 20180927
